FAERS Safety Report 13157195 (Version 2)
Quarter: 2017Q1

REPORT INFORMATION
  Report Type: Report from Study
  Country: JP (occurrence: JP)
  Receive Date: 20170127
  Receipt Date: 20170216
  Transmission Date: 20170428
  Serious: Yes (Hospitalization)
  Sender: FDA-Public Use
  Company Number: JP-AMGEN-JPNSP2017013563

PATIENT
  Age: 53 Year
  Sex: Female

DRUGS (5)
  1. CINACALCET HCL [Suspect]
     Active Substance: CINACALCET HYDROCHLORIDE
     Dosage: 71.4 MG, QD
     Route: 048
     Dates: start: 20160411, end: 20160417
  2. CINACALCET HCL [Suspect]
     Active Substance: CINACALCET HYDROCHLORIDE
     Indication: HYPERPARATHYROIDISM SECONDARY
     Dosage: 25 MG, QD
     Route: 048
     Dates: start: 20160229, end: 20160320
  3. CINACALCET HCL [Suspect]
     Active Substance: CINACALCET HYDROCHLORIDE
     Dosage: 75 MG, QD
     Route: 048
     Dates: start: 20160418
  4. CINACALCET HCL [Suspect]
     Active Substance: CINACALCET HYDROCHLORIDE
     Dosage: 75 MG, QD
     Route: 048
     Dates: start: 20160418, end: 20160526
  5. CINACALCET HCL [Suspect]
     Active Substance: CINACALCET HYDROCHLORIDE
     Dosage: 50 MG, QD
     Route: 048
     Dates: start: 20160321, end: 20160410

REACTIONS (4)
  - Nasopharyngitis [Recovered/Resolved]
  - Lumbar spinal stenosis [Not Recovered/Not Resolved]
  - Abdominal discomfort [Recovered/Resolved]
  - Spondylolisthesis [Not Recovered/Not Resolved]

NARRATIVE: CASE EVENT DATE: 20160322
